FAERS Safety Report 13167719 (Version 1)
Quarter: 2017Q1

REPORT INFORMATION
  Report Type: Spontaneous
  Country: US (occurrence: US)
  Receive Date: 20170131
  Receipt Date: 20170131
  Transmission Date: 20170428
  Serious: No
  Sender: FDA-Public Use
  Company Number: US-009507513-1701USA005878

PATIENT
  Age: 41 Year
  Sex: Female
  Weight: 76.64 kg

DRUGS (2)
  1. NEXPLANON [Suspect]
     Active Substance: ETONOGESTREL
     Indication: PRODUCT USED FOR UNKNOWN INDICATION
     Dosage: 1 DF, 68 MG / 3 YEARS
     Route: 059
     Dates: start: 20170105, end: 20170105
  2. NEXPLANON [Suspect]
     Active Substance: ETONOGESTREL
     Dosage: 1 DF, 68 MG/3 YEARS
     Route: 059
     Dates: start: 20170105

REACTIONS (2)
  - No adverse event [Unknown]
  - Complication of device insertion [Recovered/Resolved]

NARRATIVE: CASE EVENT DATE: 20170105
